FAERS Safety Report 18997388 (Version 1)
Quarter: 2021Q1

REPORT INFORMATION
  Report Type: Spontaneous
  Country: DE (occurrence: DE)
  Receive Date: 20210311
  Receipt Date: 20210311
  Transmission Date: 20210420
  Serious: Yes (Other)
  Sender: FDA-Public Use
  Company Number: DE-CURIUM-2021000084

PATIENT
  Age: 69 Year
  Sex: Male
  Weight: 54 kg

DRUGS (2)
  1. ULTRA?TECHNEKOW [Suspect]
     Active Substance: TECHNETIUM TC-99M
     Indication: SCAN MYOCARDIAL PERFUSION
     Route: 042
     Dates: start: 20210129, end: 20210129
  2. MYOVIEW [Concomitant]
     Active Substance: TECHNETIUM TC-99M TETROFOSMIN
     Indication: SCAN MYOCARDIAL PERFUSION
     Route: 042
     Dates: start: 20210129, end: 20210129

REACTIONS (3)
  - Radiation overdose [Not Recovered/Not Resolved]
  - Drug ineffective [Not Recovered/Not Resolved]
  - Scan myocardial perfusion abnormal [Not Recovered/Not Resolved]

NARRATIVE: CASE EVENT DATE: 2021
